FAERS Safety Report 5930571-5 (Version None)
Quarter: 2008Q4

REPORT INFORMATION
  Report Type: 
  Country: None (occurrence: None)
  Receive Date: 20081027
  Receipt Date: 20080926
  Transmission Date: 20090506
  Serious: No
  Sender: FDA-Public Use
  Company Number: US-BAYER-200834500NA

PATIENT
  Age: 54 Year
  Sex: Male

DRUGS (7)
  1. LEVITRA [Suspect]
     Indication: ERECTILE DYSFUNCTION
     Route: 048
     Dates: start: 20080915, end: 20080919
  2. LEVITRA [Suspect]
     Route: 048
     Dates: start: 20080201, end: 20080101
  3. LEVITRA [Suspect]
     Route: 048
     Dates: start: 20080101, end: 20080101
  4. LEVITRA [Suspect]
     Route: 048
     Dates: start: 20080101, end: 20080101
  5. CHLORTHALIDONE [Concomitant]
  6. FISH OIL [Concomitant]
  7. CIALIS [Concomitant]
     Dates: start: 20080910

REACTIONS (6)
  - EJACULATION DELAYED [None]
  - ERECTILE DYSFUNCTION [None]
  - HEADACHE [None]
  - SEMEN VOLUME DECREASED [None]
  - SINUS HEADACHE [None]
  - SLUGGISHNESS [None]
